FAERS Safety Report 18551360 (Version 1)
Quarter: 2020Q4

REPORT INFORMATION
  Report Type: Report from Study
  Country: None (occurrence: US)
  Receive Date: 20201126
  Receipt Date: 20201126
  Transmission Date: 20210114
  Serious: Yes (Death, Other)
  Sender: FDA-Public Use
  Company Number: US-ABBVIE-20K-163-3665888-00

PATIENT
  Sex: Male
  Weight: 40.86 kg

DRUGS (1)
  1. CREON [Suspect]
     Active Substance: PANCRELIPASE AMYLASE\PANCRELIPASE LIPASE\PANCRELIPASE PROTEASE
     Indication: PANCREATIC DISORDER
     Dosage: TWO CAPSULES WITH EACH MEAL
     Route: 048
     Dates: start: 2016

REACTIONS (6)
  - Lung neoplasm [Not Recovered/Not Resolved]
  - Oesophageal cancer metastatic [Unknown]
  - Gastric neoplasm [Not Recovered/Not Resolved]
  - Oesophageal carcinoma [Fatal]
  - Gait inability [Not Recovered/Not Resolved]
  - Feeding disorder [Not Recovered/Not Resolved]

NARRATIVE: CASE EVENT DATE: 2019
